FAERS Safety Report 6091012-3 (Version None)
Quarter: 2009Q1

REPORT INFORMATION
  Report Type: 
  Country: None (occurrence: None)
  Receive Date: 20090225
  Receipt Date: 20090212
  Transmission Date: 20090719
  Serious: Yes (Other)
  Sender: FDA-Public Use
  Company Number: US-BAYER-200913178NA

PATIENT
  Age: 55 Year
  Sex: Female
  Weight: 54 kg

DRUGS (6)
  1. BETASERON [Suspect]
     Indication: MULTIPLE SCLEROSIS
     Dosage: TOTAL DAILY DOSE: 8 MIU
     Route: 058
     Dates: start: 20051018
  2. RELAFEN [Concomitant]
     Dosage: UNIT DOSE: 10 MG
  3. NEURONTIN [Concomitant]
     Dosage: TOTAL DAILY DOSE: 2700 MG
     Route: 048
  4. PRENATAL VITAMINS PLUS [Concomitant]
  5. DIPROSPAN [Concomitant]
  6. VIT D CALCIUM [Concomitant]

REACTIONS (2)
  - DEPRESSION SUICIDAL [None]
  - VITAMIN B12 DEFICIENCY [None]
